FAERS Safety Report 9680637 (Version 1)
Quarter: 2013Q4

REPORT INFORMATION
  Report Type: Spontaneous
  Country: US (occurrence: US)
  Receive Date: 20131111
  Receipt Date: 20131111
  Transmission Date: 20140711
  Serious: Yes (Other)
  Sender: FDA-Public Use
  Company Number: US-PFIZER INC-2013320955

PATIENT
  Age: 66 Year
  Sex: Male
  Weight: 120 kg

DRUGS (6)
  1. LYRICA [Suspect]
     Indication: NEUROPATHY PERIPHERAL
     Dosage: 200 MG, DAILY
     Dates: start: 2008
  2. LYRICA [Suspect]
     Dosage: 200 MG, 2X/DAY
  3. LYRICA [Suspect]
     Dosage: 300 MG, 2X/DAY
  4. CRESTOR [Concomitant]
     Dosage: UNK
  5. BENICAR [Concomitant]
     Dosage: UNK
  6. PRADAXA [Concomitant]
     Dosage: UNK

REACTIONS (7)
  - Off label use [Not Recovered/Not Resolved]
  - Morton^s neuralgia [Unknown]
  - Drug ineffective for unapproved indication [Not Recovered/Not Resolved]
  - Hypoaesthesia [Not Recovered/Not Resolved]
  - Musculoskeletal stiffness [Not Recovered/Not Resolved]
  - Pain in extremity [Not Recovered/Not Resolved]
  - Intentional overdose [Not Recovered/Not Resolved]
